FAERS Safety Report 5713244-3 (Version None)
Quarter: 2008Q2

REPORT INFORMATION
  Report Type: 
  Country: None (occurrence: None)
  Receive Date: 20080422
  Receipt Date: 20080410
  Transmission Date: 20081010
  Serious: Yes (Death)
  Sender: FDA-Public Use
  Company Number: US-TYCO HEALTHCARE/MALLINCKRODT-T200800679

PATIENT

DRUGS (5)
  1. OPTIMARK [Suspect]
     Indication: NUCLEAR MAGNETIC RESONANCE IMAGING
     Dosage: UNK, SINGLE
     Dates: start: 20050314, end: 20050314
  2. OMNISCAN [Suspect]
     Indication: SCAN
  3. MAGNEVIST [Suspect]
     Indication: SCAN
  4. MULTIHANCE [Suspect]
     Indication: SCAN
  5. PROHANCE [Suspect]
     Indication: SCAN

REACTIONS (1)
  - NEPHROGENIC SYSTEMIC FIBROSIS [None]
